FAERS Safety Report 8823543 (Version 1)
Quarter: 2012Q4

REPORT INFORMATION
  Report Type: 
  Country: US (occurrence: US)
  Receive Date: 20121003
  Receipt Date: 20121003
  Transmission Date: 20130627
  Serious: No
  Sender: FDA-Public Use
  Company Number: US-ASTRAZENECA-2012SE74688

PATIENT
  Age: 59 Year
  Sex: Female

DRUGS (17)
  1. LISINOPRIL [Suspect]
     Route: 048
  2. BACTROBAN [Concomitant]
  3. EFFEXOR XR [Concomitant]
  4. VICTOZA [Concomitant]
  5. ARIMIDEX [Concomitant]
  6. FLEXERIL [Concomitant]
  7. ELAVIL [Concomitant]
  8. HUMALOG KWIKPEN [Concomitant]
  9. ALBUTEROL [Concomitant]
  10. PERCOCET [Concomitant]
  11. FORTAMET [Concomitant]
  12. VITAMIN D [Concomitant]
  13. ZOCOR [Concomitant]
  14. ASA [Concomitant]
  15. LIDODERM [Concomitant]
  16. FISH OIL [Concomitant]
  17. CLINDAMAX [Concomitant]

REACTIONS (2)
  - Anxiety [Unknown]
  - Headache [Unknown]
